FAERS Safety Report 6353428-7 (Version None)
Quarter: 2009Q3

REPORT INFORMATION
  Report Type: 
  Country: None (occurrence: None)
  Receive Date: 20090912
  Receipt Date: 20090622
  Transmission Date: 20100115
  Serious: No
  Sender: FDA-Public Use
  Company Number: US-ABBOTT-08P-163-0472806-00

PATIENT
  Sex: Female
  Weight: 159.81 kg

DRUGS (15)
  1. HUMIRA [Suspect]
     Indication: DRUG USE FOR UNKNOWN INDICATION
     Route: 050
     Dates: start: 20080823, end: 20080823
  2. ATORVASTATIN CALCIUM [Concomitant]
     Indication: BLOOD CHOLESTEROL
     Dates: start: 20040101
  3. DICLOFENAC SODIUM [Concomitant]
     Indication: ARTHRITIS
     Dates: start: 20060101
  4. SITAGLIPTIN PHOSPHATE [Concomitant]
     Indication: DIABETES MELLITUS
     Dosage: 100 MG DAILY
     Dates: start: 20060101
  5. METFORMIN HCL [Concomitant]
     Indication: DIABETES MELLITUS
     Dates: start: 20020101
  6. RANITIDINE [Concomitant]
     Indication: GASTRIC DISORDER
     Dates: start: 19980101
  7. ALPRAZOLAM [Concomitant]
     Indication: ANXIETY
     Dosage: 1 MG DAILY, AS NEEDED
     Dates: start: 20030101
  8. ENALAPRIL MALEATE [Concomitant]
     Indication: BLOOD PRESSURE
     Dates: start: 20040101
  9. FENOFIBRATE [Concomitant]
     Indication: BLOOD CHOLESTEROL
     Dates: start: 20040101
  10. ACTOX [Concomitant]
     Indication: DIABETES MELLITUS
     Dosage: 45 DAILY
     Dates: start: 20020101
  11. DICYCLOVERINE [Concomitant]
     Indication: ABDOMINAL PAIN UPPER
     Dosage: 10 MG CAPSULE FOUR TIMES DAILY AS NEEDED
     Dates: start: 20080818
  12. LEVOTHYROXINE SODIUM [Concomitant]
     Indication: THYROID DISORDER
     Dosage: 0.125 MG DAILY
     Dates: start: 20030101
  13. LORATADINE [Concomitant]
     Indication: SINUS DISORDER
     Dosage: 10 MG DAILY
     Dates: start: 20050101
  14. TERDINASIN HCL [Concomitant]
     Indication: TINEA PEDIS
     Dates: start: 20080701
  15. CIPROFLAXACIN [Concomitant]
     Route: 048
     Dates: start: 20080819

REACTIONS (2)
  - ACCIDENTAL NEEDLE STICK [None]
  - DRUG DELIVERY SYSTEM MALFUNCTION [None]
